FAERS Safety Report 7668622-2 (Version None)
Quarter: 2011Q3

REPORT INFORMATION
  Report Type: 
  Country: None (occurrence: None)
  Receive Date: 20110808
  Receipt Date: 20110808
  Transmission Date: 20111222
  Serious: Yes (Other)
  Sender: FDA-Public Use
  Company Number: None

PATIENT
  Age: 69 Year
  Sex: Female
  Weight: 97.522 kg

DRUGS (2)
  1. HUMIRA PENS [Concomitant]
     Indication: ANKYLOSING SPONDYLITIS
     Dosage: 40MG
     Route: 058
     Dates: start: 20110525, end: 20111102
  2. AMLODIPINE BESYLATE [Suspect]
     Indication: HYPERTENSION
     Dosage: 5MG
     Route: 048
     Dates: start: 20110301, end: 20110624

REACTIONS (1)
  - OEDEMA PERIPHERAL [None]
